FAERS Safety Report 20310235 (Version 1)
Quarter: 2022Q1

REPORT INFORMATION
  Report Type: Spontaneous
  Country: US (occurrence: None)
  Receive Date: 20220107
  Receipt Date: 20220107
  Transmission Date: 20220424
  Serious: No
  Sender: FDA-Public Use
  Company Number: None

PATIENT
  Age: 74 Year
  Sex: Female

DRUGS (1)
  1. PROLIA [Suspect]
     Active Substance: DENOSUMAB
     Dosage: 60MG OTHER SC
     Route: 058
     Dates: start: 20190530

REACTIONS (2)
  - Blood pressure decreased [None]
  - Peripheral coldness [None]

NARRATIVE: CASE EVENT DATE: 20220107
